FAERS Safety Report 11115810 (Version 1)
Quarter: 2015Q2

REPORT INFORMATION
  Report Type: Spontaneous
  Country: FR (occurrence: FR)
  Receive Date: 20150515
  Receipt Date: 20150515
  Transmission Date: 20150821
  Serious: Yes (Life-Threatening)
  Sender: FDA-Public Use
  Company Number: FR-PFIZER INC-2015163138

PATIENT
  Age: 50 Year
  Sex: Female

DRUGS (8)
  1. HYPNOVE [Suspect]
     Active Substance: MIDAZOLAM\MIDAZOLAM HYDROCHLORIDE
     Indication: ANAESTHESIA
     Dosage: UNK, SINGLE
     Route: 042
     Dates: start: 20150109, end: 20150109
  2. SUFENTANIL [Suspect]
     Active Substance: SUFENTANIL
     Indication: ANAESTHESIA
     Dosage: UNK, SINGLE
     Route: 042
     Dates: start: 20150109, end: 20150109
  3. SEVORAN [Suspect]
     Active Substance: SEVOFLURANE
     Indication: ANAESTHESIA
     Dosage: UNK, SINGLE
     Route: 042
     Dates: start: 20150109, end: 20150109
  4. BI-PRETERAX [Concomitant]
     Indication: HYPERTENSION
     Dosage: UNK
  5. XANAX [Suspect]
     Active Substance: ALPRAZOLAM
     Indication: ANXIETY
     Dosage: UNK, SINGLE
     Route: 048
     Dates: start: 20150109, end: 20150109
  6. CEFOXITIN [Suspect]
     Active Substance: CEFOXITIN\CEFOXITIN SODIUM
     Indication: PROPHYLAXIS
     Dosage: UNK, SINGLE
     Route: 042
     Dates: start: 20150109, end: 20150109
  7. DIPRIVAN [Suspect]
     Active Substance: PROPOFOL
     Indication: ANAESTHESIA
     Dosage: UNK, SINGLE
     Route: 042
     Dates: start: 20150109, end: 20150109
  8. ESMERON [Suspect]
     Active Substance: ROCURONIUM BROMIDE
     Indication: ANAESTHESIA
     Dosage: UNK UNK, SINGLE
     Route: 042
     Dates: start: 20150109, end: 20150109

REACTIONS (3)
  - Rash [Recovered/Resolved]
  - Tachycardia [Recovered/Resolved]
  - Anaphylactoid reaction [Recovered/Resolved]

NARRATIVE: CASE EVENT DATE: 20150109
